FAERS Safety Report 5716857-8 (Version None)
Quarter: 2008Q2

REPORT INFORMATION
  Report Type: 
  Country: None (occurrence: None)
  Receive Date: 20080422
  Receipt Date: 20080410
  Transmission Date: 20081010
  Serious: Yes (Other)
  Sender: FDA-Public Use
  Company Number: GXKR2008CA03320

PATIENT
  Age: 72 Year
  Sex: Female

DRUGS (5)
  1. TRIAMCINOLONE ACETONIDE [Suspect]
     Dosage: 200 MG, QD, INTRA-ARTICULAR
     Route: 014
     Dates: start: 20080118, end: 20080118
  2. CRESTOR [Concomitant]
  3. ASPIRIN [Concomitant]
  4. HYDROCHLOROQUINE (HYDROCHLOROQUINE) [Concomitant]
  5. PANTOPRAZOLE SODIUM [Concomitant]

REACTIONS (26)
  - ABDOMINAL DISTENSION [None]
  - ALOPECIA [None]
  - ASTHENIA [None]
  - BLOOD CORTISOL DECREASED [None]
  - BLOOD PRESSURE INCREASED [None]
  - CHEST DISCOMFORT [None]
  - CONSTIPATION [None]
  - DISTURBANCE IN ATTENTION [None]
  - DRY MOUTH [None]
  - DYSPHONIA [None]
  - DYSPNOEA [None]
  - EYE SWELLING [None]
  - FATIGUE [None]
  - HEADACHE [None]
  - HEPATIC ENZYME INCREASED [None]
  - HYPERHIDROSIS [None]
  - HYPERTRICHOSIS [None]
  - MEMORY IMPAIRMENT [None]
  - MUSCLE SPASMS [None]
  - MUSCULAR WEAKNESS [None]
  - OVERDOSE [None]
  - PALPITATIONS [None]
  - SLEEP DISORDER [None]
  - SWELLING FACE [None]
  - VISION BLURRED [None]
  - WHEEZING [None]
